FAERS Safety Report 8922596 (Version 5)
Quarter: 2014Q2

REPORT INFORMATION
  Report Type: Spontaneous
  Country: US (occurrence: US)
  Receive Date: 20121125
  Receipt Date: 20140516
  Transmission Date: 20141212
  Serious: Yes (Other)
  Sender: FDA-Public Use
  Company Number: US-AMGEN-USASP2012074460

PATIENT
  Age: 1 Year
  Sex: Male
  Weight: 1.9 kg

DRUGS (5)
  1. NPLATE [Suspect]
     Indication: PRODUCT USED FOR UNKNOWN INDICATION
     Dosage: 3 MUG/KG, QWK
     Route: 064
     Dates: start: 20101108
  2. FOLATE [Concomitant]
     Route: 064
  3. PRENATAL VITAMINS                  /02014401/ [Concomitant]
     Route: 064
  4. DEXAMETHASONE [Concomitant]
     Route: 015
  5. HYDROCORTISONE [Concomitant]
     Dosage: 50 MG, UNK
     Route: 015

REACTIONS (6)
  - Haemorrhagic diathesis [Unknown]
  - Premature baby [Unknown]
  - Thrombocytopenia [Unknown]
  - Adrenal insufficiency [Recovered/Resolved]
  - Phimosis [Unknown]
  - Intraventricular haemorrhage [Unknown]
